FAERS Safety Report 12909159 (Version 1)
Quarter: 2016Q4

REPORT INFORMATION
  Report Type: Spontaneous
  Country: US (occurrence: US)
  Receive Date: 20161103
  Receipt Date: 20161103
  Transmission Date: 20170207
  Serious: No
  Sender: FDA-Public Use
  Company Number: US-JAZZ-2016-US-016766

PATIENT
  Sex: Female

DRUGS (16)
  1. LYRICA [Suspect]
     Active Substance: PREGABALIN
     Indication: NERVOUSNESS
  2. LEVOTHYROXINE. [Concomitant]
     Active Substance: LEVOTHYROXINE
  3. AMITRIPTYLINE HCL [Concomitant]
     Active Substance: AMITRIPTYLINE
  4. XYREM [Suspect]
     Active Substance: SODIUM OXYBATE
     Indication: NARCOLEPSY
     Dosage: 2.25 G, BID
     Route: 048
     Dates: start: 201308, end: 201608
  5. XYREM [Suspect]
     Active Substance: SODIUM OXYBATE
     Dosage: 4.5 G, BID
     Dates: start: 201310, end: 2013
  6. XYREM [Suspect]
     Active Substance: SODIUM OXYBATE
     Dosage: 2.25 G, BID
     Route: 048
     Dates: start: 201607, end: 2016
  7. MULTIVITAMINS [Concomitant]
     Active Substance: VITAMINS
  8. XYREM [Suspect]
     Active Substance: SODIUM OXYBATE
     Dosage: 3 G, BID
     Route: 048
     Dates: start: 2016
  9. LYRICA [Suspect]
     Active Substance: PREGABALIN
     Indication: ANXIETY
  10. PRILOSEC [Concomitant]
     Active Substance: OMEPRAZOLE MAGNESIUM
  11. ADVIL [Concomitant]
     Active Substance: IBUPROFEN
  12. VITAMIN D [Concomitant]
     Active Substance: CHOLECALCIFEROL
  13. VALIUM [Concomitant]
     Active Substance: DIAZEPAM
  14. XYREM [Suspect]
     Active Substance: SODIUM OXYBATE
     Indication: CATAPLEXY
     Dosage: DOSE ADJUSTMENTS
     Route: 048
     Dates: start: 201308, end: 201310
  15. LUMIGAN [Concomitant]
     Active Substance: BIMATOPROST
  16. XANAX [Concomitant]
     Active Substance: ALPRAZOLAM

REACTIONS (10)
  - Pain [Unknown]
  - Adjustment disorder with depressed mood [Recovering/Resolving]
  - Spinal column stenosis [Not Recovered/Not Resolved]
  - Drug intolerance [Unknown]
  - Condition aggravated [Not Recovered/Not Resolved]
  - Back pain [Not Recovered/Not Resolved]
  - Anxiety [Recovering/Resolving]
  - Nausea [Unknown]
  - Nervousness [Recovered/Resolved]
  - Intervertebral disc degeneration [Not Recovered/Not Resolved]
